FAERS Safety Report 4720686-1 (Version None)
Quarter: 2005Q3

REPORT INFORMATION
  Report Type: 
  Country: None (occurrence: None)
  Receive Date: 20050719
  Receipt Date: 20050713
  Transmission Date: 20060218
  Serious: Yes (Death)
  Sender: FDA-Public Use
  Company Number: 200511350BWH

PATIENT
  Sex: Female

DRUGS (3)
  1. MYCELEX [Suspect]
     Dosage: ORAL
     Route: 048
     Dates: end: 20040101
  2. DITROPAN [Suspect]
     Dosage: 5 MG, ORAL
     Route: 048
     Dates: start: 20040101
  3. LEVAQUIN [Suspect]
     Dates: end: 20040101

REACTIONS (1)
  - DEATH [None]
